FAERS Safety Report 7630181-8 (Version None)
Quarter: 2011Q3

REPORT INFORMATION
  Report Type: 
  Country: None (occurrence: None)
  Receive Date: 20110722
  Receipt Date: 20110712
  Transmission Date: 20111222
  Serious: Yes (Other)
  Sender: FDA-Public Use
  Company Number: PHHY2011US63962

PATIENT
  Sex: Female

DRUGS (15)
  1. LEVSIN [Concomitant]
     Dosage: UNK, AS NEEDED
  2. BENADRYL [Concomitant]
     Dosage: UNK, AS NEEDED
  3. BION TEARS [Concomitant]
     Dosage: UNK, AS NEEDED
  4. CALCIUM CARBONATE [Concomitant]
     Dosage: UNK, AS NEEDED
  5. ASPIRIN [Concomitant]
     Dosage: UNK, AS NEEDED
  6. MUCINEX [Concomitant]
     Dosage: UNK, AS NEEDED
  7. ACETAMINOPHEN [Concomitant]
     Dosage: UNK, AS NEEDED
  8. ASCORBIC ACID [Concomitant]
     Dosage: UNK, AS NEEDED
  9. NAPROXEN SODIUM [Concomitant]
     Dosage: UNK, AS NEEDED
  10. SOMA [Concomitant]
     Dosage: UNK, AS NEEDED
  11. BISMUTH SUBSALICYLATE [Concomitant]
     Dosage: UNK, AS NEEDED
  12. RECLAST [Suspect]
     Dosage: 5 MG, 1 YEAR
     Route: 042
  13. LIBRAX [Concomitant]
     Dosage: UNK, AS NEEDED
  14. PATANOL [Concomitant]
  15. MECLIZINE [Concomitant]
     Dosage: UNK, AS NEEDED

REACTIONS (6)
  - INTERVERTEBRAL DISC PROTRUSION [None]
  - OSTEOPOROSIS [None]
  - OSTEOPENIA [None]
  - THYROID DISORDER [None]
  - LUMBAR SPINAL STENOSIS [None]
  - SPINAL DISORDER [None]
